FAERS Safety Report 8551313-3 (Version None)
Quarter: 2012Q3

REPORT INFORMATION
  Report Type: 
  Country: None (occurrence: None)
  Receive Date: 20120730
  Receipt Date: 20120113
  Transmission Date: 20120928
  Serious: No
  Sender: FDA-Public Use
  Company Number: US-ALLERGAN-1200584US

PATIENT
  Age: 61 Year
  Sex: Female

DRUGS (1)
  1. LATISSE [Suspect]
     Indication: HYPOTRICHOSIS
     Dosage: 1 GTT, QHS
     Dates: start: 20111001, end: 20111231

REACTIONS (3)
  - VISION BLURRED [None]
  - EYE DISCHARGE [None]
  - INCORRECT DOSE ADMINISTERED [None]
